FAERS Safety Report 10567714 (Version 4)
Quarter: 2014Q4

REPORT INFORMATION
  Report Type: Report from Study
  Country: US (occurrence: US)
  Receive Date: 20141106
  Receipt Date: 20141217
  Transmission Date: 20150529
  Serious: Yes (Other)
  Sender: FDA-Public Use
  Company Number: US-BIOGENIDEC-2014BI078371

PATIENT
  Age: 55 Year
  Sex: Female
  Weight: 57 kg

DRUGS (24)
  1. VITAMIN C [Concomitant]
     Active Substance: ASCORBIC ACID
     Indication: ROUTINE HEALTH MAINTENANCE
     Dates: start: 20090101
  2. GLUTATHIONE PRECURSOR [Concomitant]
     Indication: ROUTINE HEALTH MAINTENANCE
     Dates: start: 20090101
  3. PHOSPHATIDYL MATRIX [Concomitant]
     Indication: ROUTINE HEALTH MAINTENANCE
     Dates: start: 20090101
  4. MACA [Concomitant]
     Indication: ROUTINE HEALTH MAINTENANCE
     Dates: start: 20090101
  5. CRANBERRY. [Concomitant]
     Active Substance: CRANBERRY
     Indication: ROUTINE HEALTH MAINTENANCE
     Dates: start: 20090101
  6. ATIVAN [Concomitant]
     Active Substance: LORAZEPAM
     Indication: PAIN
     Dates: start: 20101223
  7. BIIB017 [Suspect]
     Active Substance: PEGINTERFERON BETA-1A
     Indication: MULTIPLE SCLEROSIS
     Route: 058
     Dates: start: 20140519
  8. EVENING PRIMROSE OIL [Concomitant]
     Active Substance: EVENING PRIMROSE OIL
     Indication: ROUTINE HEALTH MAINTENANCE
     Dates: start: 20090101
  9. BUTCHER^S BROOM [Concomitant]
     Active Substance: RUSCUS ACULEATUS ROOT
     Indication: ROUTINE HEALTH MAINTENANCE
     Dates: start: 20090101
  10. GINKGO BILOBA [Concomitant]
     Active Substance: GINKGO
     Indication: ROUTINE HEALTH MAINTENANCE
     Dates: start: 20090101
  11. ASHWAGANDHA [Concomitant]
     Active Substance: HERBALS
     Indication: ROUTINE HEALTH MAINTENANCE
     Dates: start: 20090101
  12. BACLOFEN. [Concomitant]
     Active Substance: BACLOFEN
     Indication: MUSCLE SPASTICITY
     Dates: start: 201012
  13. MALIC ACID [Concomitant]
     Active Substance: MALIC ACID
     Indication: ROUTINE HEALTH MAINTENANCE
     Dates: start: 20090101
  14. LECITHIN [Concomitant]
     Active Substance: LECITHIN
     Indication: ROUTINE HEALTH MAINTENANCE
     Dates: start: 20090101
  15. MILK THISTLE EXTRACT [Concomitant]
     Indication: ROUTINE HEALTH MAINTENANCE
     Dates: start: 20090101
  16. UBIQUINOL [Concomitant]
     Indication: ROUTINE HEALTH MAINTENANCE
     Dates: start: 20090101
  17. CHONDROITIN SULFATE (BOVINE)\GLUCOSAMINE SULFATE [Concomitant]
     Active Substance: CHONDROITIN SULFATE (BOVINE)\GLUCOSAMINE SULFATE
     Indication: ROUTINE HEALTH MAINTENANCE
     Dates: start: 20090101
  18. MULTIVITAMIN [Concomitant]
     Active Substance: VITAMINS
     Indication: ROUTINE HEALTH MAINTENANCE
     Dates: start: 20090101
  19. BIIB017 [Suspect]
     Active Substance: PEGINTERFERON BETA-1A
     Indication: MULTIPLE SCLEROSIS
     Route: 058
     Dates: start: 20140602
  20. BIIB017 [Suspect]
     Active Substance: PEGINTERFERON BETA-1A
     Indication: MULTIPLE SCLEROSIS
     Route: 058
     Dates: start: 20140616, end: 20140728
  21. BACLOFEN. [Concomitant]
     Active Substance: BACLOFEN
     Indication: PAIN
     Dates: start: 201012
  22. GINGER ROOT [Concomitant]
     Indication: ROUTINE HEALTH MAINTENANCE
     Dates: start: 20090101
  23. IBUPROFEN. [Concomitant]
     Active Substance: IBUPROFEN
     Indication: ROUTINE HEALTH MAINTENANCE
     Dates: start: 20090101
  24. MECLIZINE [Concomitant]
     Active Substance: MECLIZINE\MECLIZINE HYDROCHLORIDE
     Indication: DIZZINESS
     Dates: start: 20090101

REACTIONS (1)
  - Breast cancer [Not Recovered/Not Resolved]

NARRATIVE: CASE EVENT DATE: 20140715
